FAERS Safety Report 4494368-8 (Version None)
Quarter: 2004Q4

REPORT INFORMATION
  Report Type: 
  Country: None (occurrence: None)
  Receive Date: 20041102
  Receipt Date: 20041020
  Transmission Date: 20050328
  Serious: Yes (Death)
  Sender: FDA-Public Use
  Company Number: USA041081661

PATIENT

DRUGS (2)
  1. XIGRIS [Suspect]
  2. HEPARIN [Concomitant]

REACTIONS (1)
  - HAEMORRHAGE [None]
